FAERS Safety Report 4747860-2 (Version None)
Quarter: 2005Q3

REPORT INFORMATION
  Report Type: 
  Country: None (occurrence: None)
  Receive Date: 20050816
  Receipt Date: 20050804
  Transmission Date: 20060218
  Serious: Yes (Death)
  Sender: FDA-Public Use
  Company Number: 2005-BP-13355RO

PATIENT
  Age: 72 Year
  Sex: Male

DRUGS (13)
  1. PREDNISONE TAB [Suspect]
     Indication: PROSTATE CANCER
     Dosage: 10 MG DAILY PO
     Route: 048
     Dates: start: 20050511, end: 20050628
  2. IROFULVEN (IROFULVEN) [Suspect]
     Indication: PROSTATE CANCER
     Dosage: SEE TEXT, IV
     Route: 042
     Dates: start: 20050511, end: 20050628
  3. CAPECITABINE (CAPECITABINE) [Suspect]
     Indication: PROSTATE CANCER
     Dosage: 1000 MG/M2 BID DAYS 1-14/CYCLE AND ONCE ON DAY 15 OF 28 DAY CYCLE PO
     Route: 048
     Dates: start: 20050511, end: 20050628
  4. VERAPAMIL [Concomitant]
  5. METOPROLOL SUCCINATE [Concomitant]
  6. SPIRONOLACTONE [Concomitant]
  7. MAGNESIUM OXIDE (MAGNESIUM OXIDE) [Concomitant]
  8. FUROSEMIDE [Concomitant]
  9. DOCUSATE SODIUM (DOCUSATE SODIUM) [Concomitant]
  10. OXYCODONE HCL [Concomitant]
  11. SIMVASTATIN [Concomitant]
  12. PANTOPRAZOLE SODIUM [Concomitant]
  13. MULTIVITAMINS AND IRON (MULTIVITAMINS AND I RON) [Concomitant]

REACTIONS (1)
  - CARDIAC ARREST [None]
